FAERS Safety Report 9945679 (Version 1)
Quarter: 2014Q1

REPORT INFORMATION
  Report Type: Spontaneous
  Country: US (occurrence: US)
  Receive Date: 20140303
  Receipt Date: 20140303
  Transmission Date: 20141002
  Serious: No
  Sender: FDA-Public Use
  Company Number: US-AMGEN-USASP2013067289

PATIENT
  Age: 50 Year
  Sex: Female
  Weight: 77.1 kg

DRUGS (6)
  1. ENBREL [Suspect]
     Indication: RHEUMATOID ARTHRITIS
     Dosage: 50 MG, QWK
     Route: 058
  2. METHOTREXATE [Concomitant]
     Dosage: 2.5 MG, UNK
     Route: 065
  3. LEUCOVORIN CA [Concomitant]
     Dosage: 5 MG, UNK
     Route: 065
  4. PREMARIN [Concomitant]
     Dosage: 0.3 MG, UNK
     Route: 065
  5. NAPROXEN SOD [Concomitant]
     Dosage: 220 MG, UNK
     Route: 065
  6. MULTI-VIT [Concomitant]
     Dosage: UNK
     Route: 065

REACTIONS (2)
  - Pain [Unknown]
  - Injection site pain [Unknown]
